FAERS Safety Report 6947527-6 (Version None)
Quarter: 2010Q3

REPORT INFORMATION
  Report Type: 
  Country: None (occurrence: None)
  Receive Date: 20100827
  Receipt Date: 20090916
  Transmission Date: 20110219
  Serious: No
  Sender: FDA-Public Use
  Company Number: US-ABBOTT-09P-163-0598068-00

PATIENT
  Sex: Female
  Weight: 86.26 kg

DRUGS (7)
  1. NIASPAN [Suspect]
     Indication: BLOOD CHOLESTEROL INCREASED
     Route: 048
     Dates: start: 20090901
  2. METOPROLOL [Concomitant]
     Indication: PRODUCT USED FOR UNKNOWN INDICATION
  3. METFORMIN [Concomitant]
     Indication: HYPERGLYCAEMIA
  4. HYZAAR [Concomitant]
     Indication: HYPERTENSION
     Dosage: 100-25 MILLIGRAMS ONCE DAILY
  5. MULTIVITAMIN [Concomitant]
     Indication: PRODUCT USED FOR UNKNOWN INDICATION
  6. ASPIRIN [Concomitant]
     Indication: PRODUCT USED FOR UNKNOWN INDICATION
     Route: 048
  7. CENTRUM SILVER [Concomitant]
     Indication: VITAMIN SUPPLEMENTATION

REACTIONS (2)
  - ARTHRALGIA [None]
  - PRURITUS [None]
